FAERS Safety Report 6066820-5 (Version None)
Quarter: 2009Q1

REPORT INFORMATION
  Report Type: 
  Country: None (occurrence: None)
  Receive Date: 20090205
  Receipt Date: 20090128
  Transmission Date: 20090719
  Serious: Yes (Hospitalization, Other)
  Sender: FDA-Public Use
  Company Number: US-JNJFOC-20090200004

PATIENT
  Sex: Female
  Weight: 87.54 kg

DRUGS (1)
  1. DURAGESIC-100 [Suspect]
     Indication: MIGRAINE
     Route: 062

REACTIONS (4)
  - BRAIN SCAN ABNORMAL [None]
  - CARDIAC ARREST [None]
  - CYANOSIS [None]
  - OFF LABEL USE [None]
